FAERS Safety Report 6266027-2 (Version None)
Quarter: 2009Q3

REPORT INFORMATION
  Report Type: 
  Country: None (occurrence: None)
  Receive Date: 20090709
  Receipt Date: 20090709
  Transmission Date: 20100115
  Serious: Yes (Life-Threatening, Hospitalization, Disabling, Other)
  Sender: FDA-Public Use
  Company Number: None

PATIENT
  Age: 35 Year
  Sex: Male
  Weight: 87.5442 kg

DRUGS (1)
  1. CELEXA [Suspect]
     Indication: EMOTIONAL DISORDER
     Dosage: 20 MG PER DAY PO
     Route: 048
     Dates: start: 20060101, end: 20081127

REACTIONS (2)
  - CONVULSION [None]
  - MIDDLE INSOMNIA [None]
